FAERS Safety Report 6763106-8 (Version None)
Quarter: 2010Q2

REPORT INFORMATION
  Report Type: 
  Country: None (occurrence: None)
  Receive Date: 20100609
  Receipt Date: 20100604
  Transmission Date: 20101027
  Serious: Yes (Life-Threatening, Other)
  Sender: FDA-Public Use
  Company Number: JP-ELI_LILLY_AND_COMPANY-JP201006001897

PATIENT
  Age: 55 Year

DRUGS (1)
  1. GEMZAR [Suspect]
     Route: 042

REACTIONS (2)
  - CARDIAC ARREST [None]
  - NON-CARDIOGENIC PULMONARY OEDEMA [None]
